FAERS Safety Report 8042744-9 (Version None)
Quarter: 2011Q4

REPORT INFORMATION
  Report Type: 
  Country: None (occurrence: None)
  Receive Date: 20111209
  Receipt Date: 20110519
  Transmission Date: 20120403
  Serious: Yes (Other)
  Sender: FDA-Public Use
  Company Number: 7060794

PATIENT
  Age: 56 Year
  Sex: Female

DRUGS (1)
  1. NOVANTRONE [Suspect]
     Indication: PRODUCT USED FOR UNKNOWN INDICATION
     Dosage: 1 IN 3 M, INTRAVENOUS (NOT OTHERWISE SPECIFIED)
     Route: 042
     Dates: start: 20030101

REACTIONS (3)
  - PLATELET COUNT DECREASED [None]
  - NAUSEA [None]
  - WHITE BLOOD CELL COUNT DECREASED [None]
